FAERS Safety Report 5683426-8 (Version None)
Quarter: 2008Q1

REPORT INFORMATION
  Report Type: 
  Country: None (occurrence: None)
  Receive Date: 20080326
  Receipt Date: 20080311
  Transmission Date: 20080703
  Serious: Yes (Other)
  Sender: FDA-Public Use
  Company Number: 2008S1004153

PATIENT
  Sex: Male

DRUGS (1)
  1. FLUOXETINE [Suspect]
     Indication: DRUG USE FOR UNKNOWN INDICATION
     Dosage: 120 MG;

REACTIONS (11)
  - ACCIDENTAL OVERDOSE [None]
  - ALTERED STATE OF CONSCIOUSNESS [None]
  - BURNING SENSATION [None]
  - CONFUSIONAL STATE [None]
  - DECREASED INTEREST [None]
  - DISORIENTATION [None]
  - INCORRECT DOSE ADMINISTERED [None]
  - INSOMNIA [None]
  - MEMORY IMPAIRMENT [None]
  - PARAESTHESIA [None]
  - TREMOR [None]
